FAERS Safety Report 9168093 (Version 2)
Quarter: 2013Q2

REPORT INFORMATION
  Report Type: Spontaneous
  Country: US (occurrence: None)
  Receive Date: 20130225
  Receipt Date: 20130412
  Transmission Date: 20140414
  Serious: Yes (Hospitalization)
  Sender: FDA-Public Use
  Company Number: 2013034774

PATIENT
  Age: 31 Year
  Sex: Female
  Weight: 66.23 kg

DRUGS (11)
  1. BERINERT [Suspect]
     Indication: HEREDITARY ANGIOEDEMA
     Dosage: (1500 UNITS EVERY 4-7 DAYS INTRAVENOUS (NOT OTHERWISE SPECIFIED))
     Route: 042
     Dates: start: 20130227, end: 20130227
  2. KALBITOR [Suspect]
     Dosage: (30 MG PRN SUBCUTANEOUS)
     Dates: start: 20130228, end: 20130228
  3. EPI-PEN [Concomitant]
  4. SODIUM CHLORIDE [Concomitant]
  5. FIRAZYR [Concomitant]
  6. OXYCODONE [Concomitant]
  7. TRAZODONE [Concomitant]
  8. TIZANIDINE [Concomitant]
  9. ALBUTEROL [Concomitant]
  10. SYMBICORT [Concomitant]
  11. DIPHENHYDRAMINE [Concomitant]

REACTIONS (9)
  - Hereditary angioedema [None]
  - Musculoskeletal stiffness [None]
  - Muscle spasms [None]
  - Back pain [None]
  - Menstruation delayed [None]
  - Bladder dysfunction [None]
  - Menorrhagia [None]
  - Urinary tract infection [None]
  - Irritable bowel syndrome [None]
